FAERS Safety Report 7391186-8 (Version None)
Quarter: 2011Q2

REPORT INFORMATION
  Report Type: 
  Country: None (occurrence: None)
  Receive Date: 20110404
  Receipt Date: 20100608
  Transmission Date: 20111010
  Serious: No
  Sender: FDA-Public Use
  Company Number: US-PFIZER INC-2010072534

PATIENT
  Sex: Male
  Weight: 54 kg

DRUGS (4)
  1. SERTRALINE HYDROCHLORIDE [Suspect]
     Dosage: 100 MG
  2. SERTRALINE HYDROCHLORIDE [Suspect]
     Indication: DEPRESSION
     Dosage: 50 MG, 1X/DAY
     Dates: start: 20090801
  3. SERTRALINE HYDROCHLORIDE [Suspect]
     Dosage: 75 MG
  4. NOVOLOG [Concomitant]
     Indication: TYPE 2 DIABETES MELLITUS
     Dosage: UNK

REACTIONS (3)
  - NERVOUSNESS [None]
  - ANXIETY [None]
  - DIARRHOEA [None]
